FAERS Safety Report 5684029-1 (Version None)
Quarter: 2008Q1

REPORT INFORMATION
  Report Type: 
  Country: None (occurrence: None)
  Receive Date: 20080328
  Receipt Date: 20080320
  Transmission Date: 20080703
  Serious: Yes (Hospitalization)
  Sender: FDA-Public Use
  Company Number: GB-ROCHE-554890

PATIENT
  Age: 66 Year
  Sex: Female
  Weight: 114 kg

DRUGS (22)
  1. ORLISTAT [Suspect]
     Indication: OBESITY
     Route: 048
     Dates: start: 20070829
  2. BUMETANIDE [Concomitant]
     Route: 048
  3. TRAMADOL HCL [Concomitant]
     Indication: RHEUMATOID ARTHRITIS
     Route: 048
  4. ACETAMINOPHEN [Concomitant]
     Indication: RHEUMATOID ARTHRITIS
     Route: 048
  5. MORPHINE [Concomitant]
     Indication: RHEUMATOID ARTHRITIS
     Route: 048
  6. OMEPRAZOLE [Concomitant]
     Route: 048
  7. CALCICHEW [Concomitant]
     Indication: UNEVALUABLE EVENT
     Route: 048
  8. MONOMAX [Concomitant]
     Indication: ANGINA PECTORIS
     Dosage: MONOMAX SR
     Route: 048
  9. VITAMIN B [Concomitant]
     Route: 048
  10. TEGRETOL [Concomitant]
     Indication: EPILEPSY
     Route: 048
  11. GLUCOSAMINE SULPHATE [Concomitant]
     Indication: UNEVALUABLE EVENT
     Route: 048
  12. SPIRONOLACTONE [Concomitant]
     Route: 048
  13. ASPIRIN [Concomitant]
     Route: 048
  14. SENNA [Concomitant]
     Indication: CONSTIPATION
     Dosage: EVERYDAY
     Route: 048
  15. NICORANDIL [Concomitant]
     Indication: HYPERTENSION
     Route: 048
  16. CANDESARTAN CILEXETIL [Concomitant]
     Indication: HYPERTENSION
     Route: 048
  17. QUININE SULPHATE [Concomitant]
     Route: 048
  18. LIPITOR [Concomitant]
     Route: 048
  19. VENTOLIN [Concomitant]
     Route: 055
  20. SERETIDE [Concomitant]
     Route: 055
  21. SPIRIVA [Concomitant]
     Route: 048
  22. EVENING PRIMROSE [Concomitant]
     Indication: UNEVALUABLE EVENT
     Route: 048

REACTIONS (1)
  - ANGINA PECTORIS [None]
